FAERS Safety Report 7866314-8 (Version None)
Quarter: 2011Q4

REPORT INFORMATION
  Report Type: 
  Country: None (occurrence: None)
  Receive Date: 20111028
  Receipt Date: 20110401
  Transmission Date: 20120403
  Serious: No
  Sender: FDA-Public Use
  Company Number: US-MYLANLABS-2011S1007051

PATIENT
  Age: 30 Year
  Sex: Male

DRUGS (7)
  1. PRILOSEC [Concomitant]
     Route: 048
  2. VICODIN [Concomitant]
     Route: 048
  3. CLONIDINE [Concomitant]
     Route: 048
  4. TRAZODONE HYDROCHLORIDE [Concomitant]
     Indication: INSOMNIA
     Route: 048
  5. DIAZEPAM [Suspect]
     Indication: JOINT INJURY
     Route: 048
     Dates: start: 20110330
  6. CELEBREX [Suspect]
     Indication: JOINT INJURY
     Route: 048
     Dates: start: 20110330
  7. BENTYL [Concomitant]
     Indication: ABDOMINAL PAIN UPPER
     Route: 048

REACTIONS (2)
  - ABDOMINAL PAIN UPPER [None]
  - REACTION TO DRUG EXCIPIENTS [None]
